FAERS Safety Report 10420416 (Version 1)
Quarter: 2014Q3

REPORT INFORMATION
  Report Type: Spontaneous
  Country: US (occurrence: None)
  Receive Date: 20140701
  Receipt Date: 20140701
  Transmission Date: 20150326
  Serious: No
  Sender: FDA-Public Use
  Company Number: 1000066864

PATIENT
  Age: 64 Year
  Sex: Female

DRUGS (2)
  1. LINZESS [Suspect]
     Active Substance: LINACLOTIDE
     Indication: CONSTIPATION
     Dosage: 3 TIMES/WEEK (3 TIMES/WEEK)
  2. LINZESS [Suspect]
     Active Substance: LINACLOTIDE
     Indication: IRRITABLE BOWEL SYNDROME
     Dosage: 3 TIMES/WEEK (3 TIMES/WEEK)

REACTIONS (2)
  - Intentional product misuse [None]
  - Diarrhoea [None]
